FAERS Safety Report 8722167 (Version 2)
Quarter: 2012Q4

REPORT INFORMATION
  Report Type: 
  Country: US (occurrence: US)
  Receive Date: 20120814
  Receipt Date: 20120906
  Transmission Date: 20130627
  Serious: No
  Sender: FDA-Public Use
  Company Number: US-B.I. PHARMACEUTICALS,INC./RIDGEFIELD-2012-BP-17831BP

PATIENT
  Age: 70 Year
  Sex: Female

DRUGS (6)
  1. PRADAXA [Suspect]
     Indication: ATRIAL FIBRILLATION
     Dosage: 300 mg
     Dates: start: 20120403
  2. DIOVAN [Concomitant]
  3. TOPROL [Concomitant]
  4. MULTI VIT [Concomitant]
  5. POTASSIUM [Concomitant]
  6. LASIX [Concomitant]

REACTIONS (2)
  - Dyspepsia [Unknown]
  - Dysgeusia [Unknown]
